FAERS Safety Report 8865030 (Version 1)
Quarter: 2012Q4

REPORT INFORMATION
  Report Type: 
  Country: US (occurrence: US)
  Receive Date: 20121024
  Receipt Date: 20121024
  Transmission Date: 20130627
  Serious: No
  Sender: FDA-Public Use
  Company Number: US-AMGEN-USASP2012000738

PATIENT
  Age: 60 Year
  Sex: Female

DRUGS (15)
  1. ENBREL [Suspect]
     Indication: PRODUCT USED FOR UNKNOWN INDICATION
     Dosage: 50 mg, qwk
     Route: 058
  2. FOLIC ACID [Concomitant]
     Dosage: UNK
  3. METHOTREXATE [Concomitant]
     Dosage: UNK
  4. MICARDIS [Concomitant]
     Dosage: 40 mg, UNK
  5. VENTOLIN HFA [Concomitant]
     Dosage: UNK
  6. ATARAX [Concomitant]
     Dosage: 10 UNK, UNK
  7. NEXIUM [Concomitant]
     Dosage: 40 mg, UNK
  8. SENNA [Concomitant]
     Dosage: 8.6 mg, UNK
  9. ZOLPIDEM [Concomitant]
     Dosage: 6.25 mg, UNK
  10. ADVIL [Concomitant]
     Dosage: 200 mg, UNK
  11. MOTRIN [Concomitant]
     Dosage: 600 mg, UNK
  12. PLAQUENIL                          /00072603/ [Concomitant]
     Dosage: 200 mg, UNK
  13. ASA [Concomitant]
     Dosage: 160 mg, UNK
  14. TYLENOL /00020001/ [Concomitant]
     Dosage: 650 mg, UNK
  15. TRAMADOL HCL [Concomitant]
     Dosage: 200 mg, UNK

REACTIONS (2)
  - Injection site pain [Unknown]
  - Nasopharyngitis [Unknown]
